FAERS Safety Report 10456324 (Version 1)
Quarter: 2014Q3

REPORT INFORMATION
  Report Type: Spontaneous
  Country: US (occurrence: None)
  Receive Date: 20140912
  Receipt Date: 20140912
  Transmission Date: 20150326
  Serious: Yes (Other)
  Sender: FDA-Public Use
  Company Number: 2010S1004615

PATIENT
  Age: 59 Year
  Sex: Male

DRUGS (7)
  1. GLUCOSAMINE [Concomitant]
     Active Substance: GLUCOSAMINE
  2. PHOSPHO-SODA [Suspect]
     Active Substance: SODIUM PHOSPHATE, DIBASIC\SODIUM PHOSPHATE, MONOBASIC
     Indication: COLONOSCOPY
     Route: 048
     Dates: start: 20060712
  3. TESTIM [Concomitant]
     Active Substance: TESTOSTERONE
  4. ACTONEL (RISEDRONATE SODIUM) [Concomitant]
  5. ASPIRIN. [Concomitant]
     Active Substance: ASPIRIN
  6. RELAFEN [Concomitant]
     Active Substance: NABUMETONE
  7. TRICOR [Concomitant]
     Active Substance: FENOFIBRATE

REACTIONS (26)
  - Coronary artery disease [None]
  - Hypoacusis [None]
  - Feeling abnormal [None]
  - Peptic ulcer [None]
  - Diarrhoea [None]
  - Renal failure chronic [None]
  - Myalgia [None]
  - Lipoprotein (a) increased [None]
  - Injury [None]
  - Erectile dysfunction [None]
  - Muscle hypertrophy [None]
  - Nasal congestion [None]
  - Anal pruritus [None]
  - Upper respiratory tract infection [None]
  - Paraesthesia [None]
  - Tubulointerstitial nephritis [None]
  - Proteinuria [None]
  - Glucose tolerance impaired [None]
  - Decreased activity [None]
  - Oropharyngeal pain [None]
  - Blood pressure increased [None]
  - Ear congestion [None]
  - Abdominal pain upper [None]
  - Acrochordon [None]
  - Eczema [None]
  - Eustachian tube dysfunction [None]

NARRATIVE: CASE EVENT DATE: 20070913
